FAERS Safety Report 6730552-8 (Version None)
Quarter: 2010Q2

REPORT INFORMATION
  Report Type: 
  Country: None (occurrence: None)
  Receive Date: 20100514
  Receipt Date: 20100504
  Transmission Date: 20101027
  Serious: Yes (Other)
  Sender: FDA-Public Use
  Company Number: 574796

PATIENT
  Age: 44 Year
  Sex: Female

DRUGS (2)
  1. METHOTREXATE [Suspect]
     Indication: RHEUMATOID ARTHRITIS
     Dosage: 25 MG MILLIGRAM (S), 1 WEEK INJECTION
  2. SYNTHROID [Concomitant]

REACTIONS (7)
  - AMENORRHOEA [None]
  - ENDOMETRIAL DISORDER [None]
  - HOT FLUSH [None]
  - INSOMNIA [None]
  - LIBIDO DECREASED [None]
  - NIGHT SWEATS [None]
  - UTERINE LEIOMYOMA [None]
